FAERS Safety Report 7092026-7 (Version None)
Quarter: 2010Q4

REPORT INFORMATION
  Report Type: 
  Country: None (occurrence: None)
  Receive Date: 20101109
  Receipt Date: 20081117
  Transmission Date: 20110411
  Serious: No
  Sender: FDA-Public Use
  Company Number: US-KINGPHARMUSA00001-K200801333

PATIENT
  Sex: Female

DRUGS (1)
  1. VIROPTIC [Suspect]
     Indication: INFECTION
     Dosage: UNK GTT, UNK
     Route: 031

REACTIONS (1)
  - EYE PAIN [None]
